FAERS Safety Report 12632517 (Version 2)
Quarter: 2016Q3

REPORT INFORMATION
  Report Type: Spontaneous
  Country: US (occurrence: US)
  Receive Date: 20160808
  Receipt Date: 20160808
  Transmission Date: 20161109
  Serious: No
  Sender: FDA-Public Use
  Company Number: US-BEH-2016062501

PATIENT
  Sex: Male
  Weight: 117 kg

DRUGS (22)
  1. OMEPRAZOLE. [Concomitant]
     Active Substance: OMEPRAZOLE
  2. FOLIC ACID. [Concomitant]
     Active Substance: FOLIC ACID
  3. HIZENTRA [Suspect]
     Active Substance: HUMAN IMMUNOGLOBULIN G
     Route: 058
  4. HUMALOG [Concomitant]
     Active Substance: INSULIN LISPRO
  5. SLO-NIACIN [Concomitant]
     Active Substance: DIETARY SUPPLEMENT
  6. HIZENTRA [Suspect]
     Active Substance: HUMAN IMMUNOGLOBULIN G
     Route: 058
  7. FUROSEMIDE. [Concomitant]
     Active Substance: FUROSEMIDE
  8. VERAPAMIL [Concomitant]
     Active Substance: VERAPAMIL HYDROCHLORIDE
  9. DIPHENHYDRAMINE. [Concomitant]
     Active Substance: DIPHENHYDRAMINE
  10. OXYGEN. [Concomitant]
     Active Substance: OXYGEN
  11. ACETAMINOPHEN. [Concomitant]
     Active Substance: ACETAMINOPHEN
  12. LIPITOR [Concomitant]
     Active Substance: ATORVASTATIN CALCIUM
  13. METOPROLOL. [Concomitant]
     Active Substance: METOPROLOL
  14. LIDOCAINE. [Concomitant]
     Active Substance: LIDOCAINE
  15. EPIPEN [Concomitant]
     Active Substance: EPINEPHRINE
  16. CRESTOR [Concomitant]
     Active Substance: ROSUVASTATIN CALCIUM
  17. VITAMIN D [Concomitant]
     Active Substance: CHOLECALCIFEROL
  18. FISH OIL [Concomitant]
     Active Substance: FISH OIL
  19. WARFARIN [Concomitant]
     Active Substance: WARFARIN
  20. NEURONTIN [Concomitant]
     Active Substance: GABAPENTIN
  21. HIZENTRA [Suspect]
     Active Substance: HUMAN IMMUNOGLOBULIN G
     Indication: IMMUNODEFICIENCY COMMON VARIABLE
     Route: 058
     Dates: start: 20140417
  22. VITAMIN [Concomitant]
     Active Substance: VITAMINS

REACTIONS (1)
  - Blister [Unknown]
